FAERS Safety Report 6699888-3 (Version None)
Quarter: 2010Q2

REPORT INFORMATION
  Report Type: 
  Country: None (occurrence: None)
  Receive Date: 20100428
  Receipt Date: 20100422
  Transmission Date: 20101027
  Serious: Yes (Other)
  Sender: FDA-Public Use
  Company Number: JP-NOVOPROD-307554

PATIENT
  Age: 14 Year
  Sex: Male

DRUGS (1)
  1. NORDITROPIN NORDIFLEX [Suspect]
     Indication: GROWTH HORMONE DEFICIENCY
     Dosage: UNKOWN/ SC
     Route: 058
     Dates: end: 20100401

REACTIONS (2)
  - CONDITION AGGRAVATED [None]
  - CRANIOPHARYNGIOMA [None]
